FAERS Safety Report 9800331 (Version 3)
Quarter: 2014Q1

REPORT INFORMATION
  Report Type: Spontaneous
  Country: FR (occurrence: FR)
  Receive Date: 20140106
  Receipt Date: 20140121
  Transmission Date: 20141002
  Serious: Yes (Death)
  Sender: FDA-Public Use
  Company Number: FR-PFIZER INC-2014002598

PATIENT
  Age: 84 Year
  Sex: Female

DRUGS (17)
  1. TRIATEC [Suspect]
     Dosage: UNK
     Route: 048
  2. CORDARONE [Suspect]
     Dosage: UNK
     Route: 048
  3. ATENOLOL [Suspect]
     Dosage: UNK
     Route: 048
  4. PREVISCAN [Suspect]
     Dosage: UNK
     Route: 048
  5. SINEMET [Suspect]
     Dosage: UNK
     Route: 048
  6. GLUCOPHAGE [Suspect]
     Dosage: UNK
     Route: 048
  7. CRESTOR [Suspect]
     Dosage: UNK
     Route: 048
  8. JANUVIA [Suspect]
     Dosage: UNK
     Route: 048
  9. MOTILIUM [Suspect]
     Dosage: UNK
     Route: 048
  10. ROSUVASTATIN CALCIUM [Concomitant]
  11. FLUINDIONE [Concomitant]
  12. CARBIDOPA/LEVODOPA [Concomitant]
  13. METFORMIN [Concomitant]
  14. SITAGLIPTIN PHOSPHATE [Concomitant]
  15. RAMIPRIL [Concomitant]
  16. DOMPERIDONE [Concomitant]
  17. AMIODARONE HYDROCHLORIDE [Concomitant]

REACTIONS (1)
  - Subdural haematoma [Fatal]
